FAERS Safety Report 10236209 (Version 1)
Quarter: 2014Q1

REPORT INFORMATION
  Report Type: Spontaneous
  Country: US (occurrence: None)
  Receive Date: 20140306
  Receipt Date: 20140306
  Transmission Date: 20141002
  Serious: Yes (Other)
  Sender: FDA-Public Use
  Company Number: 163-21880-13031056

PATIENT
  Age: 71 Year
  Sex: Male

DRUGS (10)
  1. REVLIMID [Suspect]
     Indication: PLASMA CELL MYELOMA
     Route: 048
     Dates: start: 20121018
  2. ACYCLOVIR (ACICLOVIR) [Concomitant]
  3. ASPIRIN (ACETYLSALICYLIC ACID) [Concomitant]
  4. ATORVASTATIN (ATORVASTATIN) [Concomitant]
  5. BENADRYL ALLERGY (BENADRYL ALLERGY) [Concomitant]
  6. HYDROCHLOROTHIAZIDE (HYDROCHLOROTHIAZIDE) [Concomitant]
  7. METOPROLOL SUCCINATE (METOPROLOL SUCCINATE) [Concomitant]
  8. DEXAMETHASONE (DEXAMETHASONE) [Concomitant]
  9. FOLIC ACID (FOLIC ACID) [Concomitant]
  10. LEVITRA (VARDENAFIL HYDROCHLORIDE) [Concomitant]

REACTIONS (2)
  - Abdominal distension [None]
  - Blood creatinine increased [None]
